FAERS Safety Report 4462667-1 (Version None)
Quarter: 2004Q3

REPORT INFORMATION
  Report Type: 
  Country: None (occurrence: None)
  Receive Date: 20040927
  Receipt Date: 20040927
  Transmission Date: 20050211
  Serious: Yes (Life-Threatening)
  Sender: FDA-Public Use
  Company Number: None

PATIENT
  Age: 31 Year
  Sex: Female
  Weight: 68.0396 kg

DRUGS (2)
  1. IBUPROFEN [Suspect]
  2. HYDROCO/APAP 7.5-750 MG WATSON LAB [Suspect]

REACTIONS (1)
  - MEDICATION ERROR [None]
